FAERS Safety Report 7221031-2 (Version None)
Quarter: 2011Q1

REPORT INFORMATION
  Report Type: 
  Country: None (occurrence: None)
  Receive Date: 20110112
  Receipt Date: 20110111
  Transmission Date: 20110831
  Serious: No
  Sender: FDA-Public Use
  Company Number: US-PFIZER INC-2011007077

PATIENT
  Sex: Female

DRUGS (1)
  1. TETRACYCLINE HCL [Suspect]
     Indication: EAR INFECTION
     Dosage: UNK
     Route: 048

REACTIONS (2)
  - TEETH BRITTLE [None]
  - TOOTH DISCOLOURATION [None]
